FAERS Safety Report 9403729 (Version 1)
Quarter: 2013Q3

REPORT INFORMATION
  Report Type: Spontaneous
  Country: US (occurrence: None)
  Receive Date: 20130715
  Receipt Date: 20130715
  Transmission Date: 20140515
  Serious: Yes (Hospitalization)
  Sender: FDA-Public Use
  Company Number: None

PATIENT
  Age: 72 Year
  Sex: Male
  Weight: 87.6 kg

DRUGS (2)
  1. DOCETAXEL (TAXOTERE) [Suspect]
  2. BICALUTAMIDE [Suspect]

REACTIONS (4)
  - Lethargy [None]
  - Asthenia [None]
  - Enterobacter test positive [None]
  - Febrile neutropenia [None]
